FAERS Safety Report 18386618 (Version 1)
Quarter: 2020Q4

REPORT INFORMATION
  Report Type: Spontaneous
  Country: CA (occurrence: CA)
  Receive Date: 20201015
  Receipt Date: 20201015
  Transmission Date: 20210114
  Serious: Yes (Hospitalization, Other)
  Sender: FDA-Public Use
  Company Number: CA-JNJFOC-20201016015

PATIENT
  Age: 56 Year
  Sex: Female
  Weight: 65 kg

DRUGS (3)
  1. ENTOCORT [Concomitant]
     Active Substance: BUDESONIDE
     Indication: PRODUCT USED FOR UNKNOWN INDICATION
     Route: 048
  2. INFLIXIMAB, RECOMBINANT [Suspect]
     Active Substance: INFLIXIMAB
     Indication: CROHN^S DISEASE
     Route: 042
  3. PREDNISONE. [Concomitant]
     Active Substance: PREDNISONE
     Indication: PRODUCT USED FOR UNKNOWN INDICATION
     Route: 048

REACTIONS (6)
  - Headache [Unknown]
  - Bacterial sepsis [Unknown]
  - Joint range of motion decreased [Unknown]
  - Condition aggravated [Unknown]
  - Rash [Unknown]
  - Joint swelling [Unknown]
